FAERS Safety Report 18901956 (Version 2)
Quarter: 2021Q1

REPORT INFORMATION
  Report Type: Report from Study
  Country: US (occurrence: US)
  Receive Date: 20210216
  Receipt Date: 20210224
  Transmission Date: 20210420
  Serious: Yes (Death)
  Sender: FDA-Public Use
  Company Number: US-TAIHO ONCOLOGY  INC-EU-2021-00456

PATIENT
  Age: 58 Year
  Sex: Male

DRUGS (8)
  1. PANTOPRAZOLE [Concomitant]
     Active Substance: PANTOPRAZOLE
  2. LORAZEPAM. [Concomitant]
     Active Substance: LORAZEPAM
  3. MORPHINE [Concomitant]
     Active Substance: MORPHINE
  4. NADOLOL. [Concomitant]
     Active Substance: NADOLOL
  5. LONSURF [Suspect]
     Active Substance: TIPIRACIL HYDROCHLORIDE\TRIFLURIDINE
     Indication: COLON CANCER
     Dosage: CYCLE 1
     Route: 048
     Dates: start: 20201221
  6. ONDANSETRON [Concomitant]
     Active Substance: ONDANSETRON
  7. OLANZAPINE. [Concomitant]
     Active Substance: OLANZAPINE
  8. LONSURF [Suspect]
     Active Substance: TIPIRACIL HYDROCHLORIDE\TRIFLURIDINE
     Dosage: CYCLE UNKNOWN
     Route: 048

REACTIONS (1)
  - Disease progression [Fatal]

NARRATIVE: CASE EVENT DATE: 20210116
